FAERS Safety Report 24288274 (Version 1)
Quarter: 2024Q3

REPORT INFORMATION
  Report Type: Spontaneous
  Country: DE (occurrence: DE)
  Receive Date: 20240905
  Receipt Date: 20240905
  Transmission Date: 20241016
  Serious: Yes (Other)
  Sender: SANDOZ
  Company Number: DE-BAXTER-2021BAX000905

PATIENT
  Age: 67 Year
  Sex: Female

DRUGS (21)
  1. CYTARABINE [Suspect]
     Active Substance: CYTARABINE
     Dosage: BSA, CYCLE C, DAY 1 AND 2
     Route: 042
  2. CYTARABINE [Suspect]
     Active Substance: CYTARABINE
     Indication: Central nervous system lymphoma
     Dosage: CYCLE A, DAY 5
     Route: 050
  3. CYTARABINE [Suspect]
     Active Substance: CYTARABINE
     Dosage: CYCLE B, DAY 5
     Route: 050
  4. CYTARABINE [Suspect]
     Active Substance: CYTARABINE
     Dosage: CYCLE C, DAY 7
     Route: 050
  5. DECADRON (DEXAMETHASONE SODIUM PHOSPHATE) [Suspect]
     Active Substance: DEXAMETHASONE SODIUM PHOSPHATE
     Indication: Central nervous system lymphoma
     Dosage: BSA, CYCLE A (DAY 1, 2, 3, 4 AND 5)
     Route: 048
  6. DECADRON (DEXAMETHASONE SODIUM PHOSPHATE) [Suspect]
     Active Substance: DEXAMETHASONE SODIUM PHOSPHATE
     Dosage: BSA, CYCLE B (DAY 1, 2, 3, 4 AND 5)
     Route: 048
  7. DECADRON (DEXAMETHASONE SODIUM PHOSPHATE) [Suspect]
     Active Substance: DEXAMETHASONE SODIUM PHOSPHATE
     Dosage: BSA, CYCLE C (DAY 1, 2, 3, 4 AND 5)
     Route: 048
  8. CYCLOPHOSPHAMIDE [Suspect]
     Active Substance: CYCLOPHOSPHAMIDE
     Indication: Central nervous system lymphoma
     Dosage: CYCLE B CYCLICAL POLYCHEMOTHERAPY (DAY 2, 3, 4 AND 5)
     Route: 042
  9. IFOSFAMIDE [Suspect]
     Active Substance: IFOSFAMIDE
     Indication: Central nervous system lymphoma
     Dosage: CYCLICAL POLYCHEMOTHERAPY, CYCLE A, OVER 1 HOUR PER INFUSION (DAY 2, 3, 4 AND 5)
     Route: 042
  10. METHOTREXATE [Suspect]
     Active Substance: METHOTREXATE
     Indication: Central nervous system lymphoma
     Dosage: CYCLE A (DAY 1, 2, 3, 4)
     Route: 050
  11. METHOTREXATE [Suspect]
     Active Substance: METHOTREXATE
     Dosage: CYCLE B (DAY 1, 2, 3, 4)
     Route: 050
  12. METHOTREXATE [Suspect]
     Active Substance: METHOTREXATE
     Dosage: CYCLE C (DAY 3, 4, 5 AND 6)
     Route: 050
  13. METHOTREXATE [Suspect]
     Active Substance: METHOTREXATE
     Dosage: CYCLE A, DAY 1; 0.5 G/M2 BSA OVER 30 MIN AND 4.5 G/M2 BSA OVER 23.5 HOURS PER INFUSION
     Route: 042
  14. METHOTREXATE [Suspect]
     Active Substance: METHOTREXATE
     Dosage: CYCLE B, DAY 1; 0.5 G/M2 BSA OVER 30 MIN AND 4.5 G/M2 BSA OVER 23.5 HOURS PER INFUSION
     Route: 042
  15. METHOTREXATE [Suspect]
     Active Substance: METHOTREXATE
     Dosage: CYCLES 4 AND 5
     Route: 050
  16. PREDNISOLONE [Suspect]
     Active Substance: PREDNISOLONE
     Dosage: CYCLE B, DAY 1, 2, 3 AND 4
     Route: 050
  17. PREDNISOLONE [Suspect]
     Active Substance: PREDNISOLONE
     Indication: Central nervous system lymphoma
     Dosage: CYCLE C, DAY 3, 4, 5 AND 6
     Route: 050
  18. PREDNISOLONE [Suspect]
     Active Substance: PREDNISOLONE
     Dosage: CYCLE-A, DAY 1, 2, 3 AND 4
     Route: 050
  19. VINCRISTINE [Suspect]
     Active Substance: VINCRISTINE
     Indication: Central nervous system lymphoma
     Dosage: CYCLE A, DAY 1
     Route: 042
  20. VINCRISTINE [Suspect]
     Active Substance: VINCRISTINE
     Dosage: CYCLE B, DAY 1
     Route: 042
  21. VINDESINE [Suspect]
     Active Substance: VINDESINE
     Indication: Central nervous system lymphoma
     Dosage: CYCLE C, DAY 1
     Route: 042

REACTIONS (6)
  - Pulmonary oedema [Unknown]
  - Rash [Unknown]
  - Infection [Unknown]
  - Leukopenia [Unknown]
  - Alopecia [Unknown]
  - Thrombocytopenia [Unknown]
